FAERS Safety Report 9398457 (Version 1)
Quarter: 2013Q3

REPORT INFORMATION
  Report Type: Spontaneous
  Country: TW (occurrence: TW)
  Receive Date: 20130712
  Receipt Date: 20130712
  Transmission Date: 20140515
  Serious: Yes (Hospitalization, Other)
  Sender: FDA-Public Use
  Company Number: TW-AMGEN-TWNSP2013048799

PATIENT
  Age: 55 Year
  Sex: Female

DRUGS (8)
  1. ENBREL [Suspect]
     Indication: RHEUMATOID ARTHRITIS
     Dosage: 25 MG, 2X/WEEK
     Route: 058
     Dates: start: 20070711, end: 20130615
  2. CELECOXIB [Concomitant]
     Indication: RHEUMATIC DISORDER
     Dosage: 1 DF (200), 2X/DAY
     Dates: start: 20130522, end: 20130623
  3. METISONE [Concomitant]
     Indication: RHEUMATIC DISORDER
     Dosage: 2 MG, 2X/DAY
     Dates: start: 20130522, end: 20130623
  4. CALBO [Concomitant]
     Indication: OSTEOPOROSIS
     Dosage: 950 MG, 1X/DAY
     Dates: start: 20130522, end: 20130623
  5. RIVOTRIL [Concomitant]
     Indication: RHEUMATIC DISORDER
     Dosage: 0.5 MG, 1X/DAY AT BEDTIME
     Dates: start: 20130522, end: 20130623
  6. ARTELAC                            /00445101/ [Concomitant]
     Indication: SJOGREN^S SYNDROME
     Dosage: OU TID
     Route: 047
     Dates: start: 20130522, end: 20130623
  7. NORVASC [Concomitant]
     Indication: RHEUMATIC DISORDER
     Dosage: 2.5 MG, 1X/DAY
     Dates: start: 20130522, end: 20130623
  8. CEFADROXIL [Concomitant]
     Indication: PROPHYLAXIS
     Dosage: 1 CAPSULE (500), EVERY 12 HOURS
     Dates: start: 20130522, end: 20130623

REACTIONS (2)
  - Hydronephrosis [Recovering/Resolving]
  - Calculus ureteric [Recovering/Resolving]
